FAERS Safety Report 19461505 (Version 1)
Quarter: 2021Q2

REPORT INFORMATION
  Report Type: Spontaneous
  Country: JP (occurrence: JP)
  Receive Date: 20210625
  Receipt Date: 20210625
  Transmission Date: 20210717
  Serious: Yes (Death, Hospitalization)
  Sender: FDA-Public Use
  Company Number: JP-ROCHE-2857964

PATIENT
  Age: 63 Year
  Sex: Male

DRUGS (2)
  1. ACTEMRA [Suspect]
     Active Substance: TOCILIZUMAB
     Indication: COVID-19
     Route: 041
     Dates: start: 20210202, end: 20210202
  2. DECADRON [Suspect]
     Active Substance: DEXAMETHASONE
     Indication: COVID-19
     Dosage: UNKNOWN
     Route: 065
     Dates: start: 20210125, end: 20210208

REACTIONS (2)
  - Pericarditis [Fatal]
  - Off label use [Unknown]
